FAERS Safety Report 18472657 (Version 1)
Quarter: 2020Q4

REPORT INFORMATION
  Report Type: Spontaneous
  Country: US (occurrence: US)
  Receive Date: 20201106
  Receipt Date: 20201106
  Transmission Date: 20210114
  Serious: Yes (Death, Life-Threatening)
  Sender: FDA-Public Use
  Company Number: US-ICU MEDICAL, INC.-ICU2020US00071

PATIENT
  Age: 71 Year
  Sex: Male
  Weight: 120 kg

DRUGS (6)
  1. FENTANYL. [Suspect]
     Active Substance: FENTANYL
     Indication: PREMEDICATION
     Dosage: 2500MCG/250ML INFUSING AT 5 ML/HR
     Route: 042
  2. NOREPINEPHRINE. [Suspect]
     Active Substance: NOREPINEPHRINE
     Indication: PREMEDICATION
     Dosage: 8MG/250ML/ INFUSING AT  22.5ML/HR
     Route: 042
  3. NORMOSOL-R [Suspect]
     Active Substance: MAGNESIUM CHLORIDE\POTASSIUM CHLORIDE\SODIUM ACETATE ANHYDROUS\SODIUM CHLORIDE\SODIUM GLUCONATE
     Indication: PREMEDICATION
     Dosage: 10 ML/HR
     Route: 042
  4. EPINEPHRINE. [Suspect]
     Active Substance: EPINEPHRINE
     Indication: PREMEDICATION
     Dosage: 2MG/100ML INFUSING AT 9ML/HR
     Route: 042
  5. INSULIN [Suspect]
     Active Substance: INSULIN NOS
     Indication: PREMEDICATION
     Dosage: 100 UNITS/100 ML INFUSING AT 4 ML/HR
     Route: 042
  6. VASOPRESSIN. [Suspect]
     Active Substance: VASOPRESSIN
     Indication: PREMEDICATION
     Dosage: 20 UNITS/100ML/ INFUSING AT  12 ML/HR
     Route: 042

REACTIONS (4)
  - Product complaint [Unknown]
  - Cardiogenic shock [Fatal]
  - Respiratory failure [Fatal]
  - Device breakage [Unknown]

NARRATIVE: CASE EVENT DATE: 202006
